FAERS Safety Report 4854492-4 (Version None)
Quarter: 2005Q4

REPORT INFORMATION
  Report Type: 
  Country: None (occurrence: None)
  Receive Date: 20051213
  Receipt Date: 20051206
  Transmission Date: 20060501
  Serious: Yes (Hospitalization, Other)
  Sender: FDA-Public Use
  Company Number: 2005-CZ-01326

PATIENT
  Age: 54 Year
  Sex: Female

DRUGS (1)
  1. CITALOPRAM 20MG FILM-COATED TABLETS (CITALOPRAM) [Suspect]
     Indication: INTENTIONAL OVERDOSE
     Dosage: 14-30 TABLETS

REACTIONS (11)
  - ALCOHOL POISONING [None]
  - ANGLE CLOSURE GLAUCOMA [None]
  - CORNEAL OEDEMA [None]
  - DEPRESSED MOOD [None]
  - EYE DISORDER [None]
  - INTRAOCULAR PRESSURE INCREASED [None]
  - MYDRIASIS [None]
  - OVERDOSE [None]
  - RETINAL HAEMORRHAGE [None]
  - SUICIDAL IDEATION [None]
  - VITREOUS HAEMORRHAGE [None]
